FAERS Safety Report 20160256 (Version 1)
Quarter: 2021Q4

REPORT INFORMATION
  Report Type: Spontaneous
  Country: US (occurrence: None)
  Receive Date: 20211207
  Receipt Date: 20211207
  Transmission Date: 20220303
  Serious: No
  Sender: FDA-Public Use
  Company Number: None

PATIENT
  Sex: Female

DRUGS (1)
  1. HUMIRA [Suspect]
     Active Substance: ADALIMUMAB
     Indication: Rheumatoid arthritis
     Dosage: OTHER FREQUENCY : EVERY14DAYS;?
     Route: 058
     Dates: start: 20211110

REACTIONS (12)
  - Therapy non-responder [None]
  - Musculoskeletal stiffness [None]
  - Flatulence [None]
  - Hypertension [None]
  - Headache [None]
  - Chest pain [None]
  - Abdominal pain upper [None]
  - Flank pain [None]
  - Psychomotor hyperactivity [None]
  - Sluggishness [None]
  - Mood swings [None]
  - Lethargy [None]
